FAERS Safety Report 23103469 (Version 1)
Quarter: 2023Q4

REPORT INFORMATION
  Report Type: Spontaneous
  Country: US (occurrence: US)
  Receive Date: 20231025
  Receipt Date: 20231025
  Transmission Date: 20240110
  Serious: No
  Sender: FDA-Public Use
  Company Number: US-Indoco-000439

PATIENT
  Sex: Male

DRUGS (4)
  1. DORZOLAMIDE [Suspect]
     Active Substance: DORZOLAMIDE
     Indication: Intraocular pressure increased
     Dosage: OPTHALMIC SOLUTION; STRENGTH: 2%; 1 DROP, BOTH EYES, TWICE A DAY
     Dates: start: 20230501, end: 20230601
  2. LATANOPROST [Concomitant]
     Active Substance: LATANOPROST
     Dosage: 1 DROP BOTH EYES ONCE A DAY
  3. ALPHAGAN P [Concomitant]
     Active Substance: BRIMONIDINE TARTRATE
     Dosage: ONE DROP LEFT EYE ONLY TWICE A DAY
  4. DORZOLAMIDE [Concomitant]
     Active Substance: DORZOLAMIDE
     Dosage: 2%; 1 DROP BOTH EYES TWICE A DAY

REACTIONS (1)
  - Drug ineffective [Unknown]
